FAERS Safety Report 24322016 (Version 1)
Quarter: 2024Q3

REPORT INFORMATION
  Report Type: Spontaneous
  Country: RO (occurrence: RO)
  Receive Date: 20240916
  Receipt Date: 20240916
  Transmission Date: 20241017
  Serious: Yes (Other)
  Sender: TEVA
  Company Number: RO-TEVA-VS-3241978

PATIENT
  Age: 94 Year
  Sex: Male

DRUGS (8)
  1. DONEPEZIL HYDROCHLORIDE [Suspect]
     Active Substance: DONEPEZIL HYDROCHLORIDE
     Indication: Product used for unknown indication
     Route: 048
     Dates: start: 202408, end: 2024
  2. DONEPEZIL HYDROCHLORIDE [Suspect]
     Active Substance: DONEPEZIL HYDROCHLORIDE
     Indication: Product used for unknown indication
     Route: 048
     Dates: start: 20240904, end: 20240905
  3. MEMANTINE [Concomitant]
     Active Substance: MEMANTINE
     Indication: Product used for unknown indication
     Dosage: HALF
     Dates: start: 202408
  4. GABAPENTIN [Concomitant]
     Active Substance: GABAPENTIN
     Indication: Product used for unknown indication
  5. SULODEXIDE [Concomitant]
     Active Substance: SULODEXIDE
     Indication: Product used for unknown indication
  6. SERTRALINE HYDROCHLORIDE [Concomitant]
     Active Substance: SERTRALINE HYDROCHLORIDE
     Indication: Product used for unknown indication
  7. GINKGO [Concomitant]
     Active Substance: GINKGO
     Indication: Product used for unknown indication
  8. multivitamin and minerals complex [Concomitant]
     Indication: Product used for unknown indication

REACTIONS (8)
  - Seizure [Not Recovered/Not Resolved]
  - Delirium [Not Recovered/Not Resolved]
  - Head titubation [Not Recovered/Not Resolved]
  - Tremor [Not Recovered/Not Resolved]
  - Viral infection [Unknown]
  - Agitation [Unknown]
  - Pollakiuria [Unknown]
  - Insomnia [Recovering/Resolving]

NARRATIVE: CASE EVENT DATE: 20240101
